FAERS Safety Report 12161527 (Version 1)
Quarter: 2016Q1

REPORT INFORMATION
  Report Type: Spontaneous
  Country: GB (occurrence: GB)
  Receive Date: 20160309
  Receipt Date: 20160309
  Transmission Date: 20160526
  Serious: Yes (Congenital Anomaly, Other)
  Sender: FDA-Public Use
  Company Number: GB-ALVOGEN-2016-ALVOGEN-022623

PATIENT
  Sex: Male

DRUGS (8)
  1. HYDROCHLOROTHIAZIDE. [Suspect]
     Active Substance: HYDROCHLOROTHIAZIDE
     Indication: PRODUCT USED FOR UNKNOWN INDICATION
     Route: 064
  2. RIBOFLAVIN [Suspect]
     Active Substance: RIBOFLAVIN
     Indication: PRODUCT USED FOR UNKNOWN INDICATION
     Route: 064
  3. PYRIDOXINE [Suspect]
     Active Substance: PYRIDOXINE
     Indication: PRODUCT USED FOR UNKNOWN INDICATION
     Route: 064
  4. NICOTINAMIDE [Suspect]
     Active Substance: NIACINAMIDE
     Indication: PRODUCT USED FOR UNKNOWN INDICATION
     Route: 064
  5. FOLIC ACID. [Suspect]
     Active Substance: FOLIC ACID
     Indication: PRODUCT USED FOR UNKNOWN INDICATION
     Route: 064
  6. LISINOPRIL. [Suspect]
     Active Substance: LISINOPRIL
     Indication: PRODUCT USED FOR UNKNOWN INDICATION
     Route: 064
  7. ASCORBIC ACID. [Suspect]
     Active Substance: ASCORBIC ACID
     Indication: PRODUCT USED FOR UNKNOWN INDICATION
     Route: 064
  8. THIAMINE MONONITRATE [Suspect]
     Active Substance: THIAMINE MONONITRATE
     Indication: PRODUCT USED FOR UNKNOWN INDICATION
     Route: 064

REACTIONS (5)
  - Premature baby [Unknown]
  - Scrotal disorder [Recovered/Resolved]
  - Foetal exposure during pregnancy [Recovered/Resolved]
  - Multiple congenital abnormalities [Unknown]
  - Pulmonary valve stenosis [Recovered/Resolved]
